FAERS Safety Report 8873017 (Version 1)
Quarter: 2012Q4

REPORT INFORMATION
  Report Type: 
  Country: US (occurrence: US)
  Receive Date: 20121030
  Receipt Date: 20121030
  Transmission Date: 20130627
  Serious: No
  Sender: FDA-Public Use
  Company Number: US-TEVA-366585USA

PATIENT
  Age: 45 Year
  Sex: Female

DRUGS (2)
  1. TREANDA [Suspect]
  2. RITUXIMAB [Suspect]

REACTIONS (1)
  - Neutropenia [Unknown]
